FAERS Safety Report 14770193 (Version 3)
Quarter: 2021Q1

REPORT INFORMATION
  Report Type: Spontaneous
  Country: US (occurrence: US)
  Receive Date: 20180417
  Receipt Date: 20210120
  Transmission Date: 20210419
  Serious: Yes (Life-Threatening, Hospitalization, Disabling, Other)
  Sender: FDA-Public Use
  Company Number: US-JNJFOC-20180416928

PATIENT
  Age: 16 Year
  Sex: Male

DRUGS (1)
  1. DURAGESIC [Suspect]
     Active Substance: FENTANYL
     Indication: PRODUCT USED FOR UNKNOWN INDICATION
     Route: 065

REACTIONS (9)
  - Overdose [Unknown]
  - Depressed level of consciousness [Recovered/Resolved]
  - Respiratory rate decreased [Unknown]
  - Cyanosis [Unknown]
  - Drug abuse [Unknown]
  - Deafness neurosensory [Not Recovered/Not Resolved]
  - Tachycardia [Unknown]
  - Hyperhidrosis [Unknown]
  - Snoring [Unknown]
